FAERS Safety Report 5836039-9 (Version None)
Quarter: 2008Q3

REPORT INFORMATION
  Report Type: 
  Country: None (occurrence: None)
  Receive Date: 20080806
  Receipt Date: 20080729
  Transmission Date: 20090109
  Serious: Yes (Hospitalization, Other)
  Sender: FDA-Public Use
  Company Number: US-PFIZER INC-2008063736

PATIENT
  Sex: Male
  Weight: 111.36 kg

DRUGS (12)
  1. LYRICA [Suspect]
     Indication: FIBROMYALGIA
     Dates: start: 20080101, end: 20080101
  2. ADVAIR DISKUS 100/50 [Concomitant]
  3. VITAMIN TAB [Concomitant]
  4. FLONASE [Concomitant]
  5. EFFEXOR [Concomitant]
  6. SIMVASTATIN [Concomitant]
  7. OMEPRAZOLE [Concomitant]
  8. CARBAMAZEPINE [Concomitant]
  9. ATENOLOL [Concomitant]
  10. AGGRENOX [Concomitant]
  11. CLONAZEPAM [Concomitant]
  12. CYCLOBENZAPRINE HCL [Concomitant]

REACTIONS (5)
  - FALL [None]
  - GAIT DISTURBANCE [None]
  - MALAISE [None]
  - MUSCULAR WEAKNESS [None]
  - SPEECH DISORDER [None]
